FAERS Safety Report 4855653-0 (Version None)
Quarter: 2005Q4

REPORT INFORMATION
  Report Type: 
  Country: None (occurrence: None)
  Receive Date: 20051216
  Receipt Date: 20051207
  Transmission Date: 20060501
  Serious: Yes (Hospitalization)
  Sender: FDA-Public Use
  Company Number: PHBS2005FI18099

PATIENT
  Age: 56 Year
  Sex: Female

DRUGS (3)
  1. ZOMETA [Suspect]
     Indication: OSTEOPOROSIS
     Dosage: 4 MG, UNK
  2. EFFEXOR [Concomitant]
  3. CALCIUM GLUCONATE [Concomitant]

REACTIONS (5)
  - BODY TEMPERATURE INCREASED [None]
  - GENERAL PHYSICAL HEALTH DETERIORATION [None]
  - PAIN [None]
  - PYREXIA [None]
  - TREMOR [None]
